FAERS Safety Report 7902986-7 (Version None)
Quarter: 2011Q4

REPORT INFORMATION
  Report Type: 
  Country: None (occurrence: None)
  Receive Date: 20111107
  Receipt Date: 20111025
  Transmission Date: 20120403
  Serious: Yes (Other)
  Sender: FDA-Public Use
  Company Number: 2011MA015736

PATIENT
  Age: 60 Year
  Sex: Female

DRUGS (9)
  1. NAPROXEN [Concomitant]
  2. TRAMADOL HCL [Concomitant]
  3. COLCHICINE [Concomitant]
  4. FELODIPINE [Concomitant]
  5. SOLIFENACIN SUCCINATE [Concomitant]
  6. GABAPENTIN [Suspect]
     Dates: start: 20110720, end: 20110930
  7. ASPIRIN [Concomitant]
  8. BENDROFLUMETHIAZIDE [Concomitant]
  9. ENALAPRIL MALEATE [Concomitant]

REACTIONS (2)
  - VASCULITIS [None]
  - VASCULITIC RASH [None]
